FAERS Safety Report 14266304 (Version 3)
Quarter: 2018Q2

REPORT INFORMATION
  Report Type: Spontaneous
  Country: US (occurrence: US)
  Receive Date: 20171210
  Receipt Date: 20180523
  Transmission Date: 20180711
  Serious: No
  Sender: FDA-Public Use
  Company Number: US-ASTRAZENECA-2017SF22219

PATIENT
  Age: 68 Year
  Sex: Female
  Weight: 48.5 kg

DRUGS (12)
  1. TELMISARTAN. [Concomitant]
     Active Substance: TELMISARTAN
     Indication: CARDIAC DISORDER
     Route: 048
  2. TRAZODONE [Concomitant]
     Active Substance: TRAZODONE HYDROCHLORIDE
     Indication: INSOMNIA
     Route: 048
  3. PROAIR HFA [Concomitant]
     Active Substance: ALBUTEROL SULFATE
     Indication: DYSPNOEA
     Dosage: 2 PUFFS THREE TIMES
     Route: 055
  4. TUDORZA PRESSAIR [Suspect]
     Active Substance: ACLIDINIUM BROMIDE
     Indication: ASTHMA
     Dosage: 400 MCG, 1 PUFF TWICE A DAY
     Route: 055
     Dates: start: 2017
  5. RIZATRIPTAN BENZOATE. [Concomitant]
     Active Substance: RIZATRIPTAN BENZOATE
     Indication: MIGRAINE
     Dosage: 10.0MG AS REQUIRED
     Route: 048
  6. VITAMINS NOS [Concomitant]
     Active Substance: VITAMINS
  7. TUDORZA PRESSAIR [Suspect]
     Active Substance: ACLIDINIUM BROMIDE
     Indication: ASTHMA
     Dosage: 400 MCG, 1 PUFF TWICE A DAY
     Route: 055
     Dates: start: 201711
  8. BEVESPI AEROSPHERE [Suspect]
     Active Substance: FORMOTEROL FUMARATE\GLYCOPYRROLATE
     Indication: DYSPNOEA
     Dosage: 9 MCG, 2 PUFFS TWICE A DAY
     Route: 055
     Dates: start: 2016
  9. OMEPRAZOLE. [Suspect]
     Active Substance: OMEPRAZOLE
     Indication: ABDOMINAL DISCOMFORT
     Route: 048
  10. CLONAZEPAM. [Concomitant]
     Active Substance: CLONAZEPAM
     Indication: RESTLESS LEGS SYNDROME
     Dosage: DAILY
     Route: 048
  11. RESTASIS [Concomitant]
     Active Substance: CYCLOSPORINE
     Indication: DRY EYE
     Dosage: 1 DROP IN BOTH EYES TWICE A DAY
     Route: 047
  12. VERAPAMIL [Concomitant]
     Active Substance: VERAPAMIL HYDROCHLORIDE
     Indication: CARDIAC DISORDER
     Route: 048

REACTIONS (15)
  - Migraine [Unknown]
  - Intentional product misuse [Unknown]
  - Gastrooesophageal reflux disease [Unknown]
  - Hypertension [Unknown]
  - Restless legs syndrome [Unknown]
  - Sleep disorder [Unknown]
  - Device failure [Unknown]
  - Dry eye [Unknown]
  - Ocular hyperaemia [Unknown]
  - Product use in unapproved indication [Unknown]
  - Hypoacusis [Unknown]
  - Abdominal discomfort [Unknown]
  - Off label use [Unknown]
  - Wrong technique in product usage process [Unknown]
  - Visual impairment [Unknown]

NARRATIVE: CASE EVENT DATE: 2017
